FAERS Safety Report 16806472 (Version 1)
Quarter: 2019Q3

REPORT INFORMATION
  Report Type: Spontaneous
  Country: IN (occurrence: IN)
  Receive Date: 20190913
  Receipt Date: 20190913
  Transmission Date: 20191005
  Serious: Yes (Hospitalization, Other)
  Sender: FDA-Public Use
  Company Number: IN-ASTRAZENECA-2019SF30517

PATIENT
  Age: 74 Year
  Sex: Female
  Weight: 90 kg

DRUGS (2)
  1. OSIMERTINIB. [Suspect]
     Active Substance: OSIMERTINIB
     Indication: NON-SMALL CELL LUNG CANCER
     Route: 048
     Dates: start: 201707
  2. OSIMERTINIB. [Suspect]
     Active Substance: OSIMERTINIB
     Indication: NON-SMALL CELL LUNG CANCER
     Route: 048
     Dates: start: 2019

REACTIONS (15)
  - Intracranial pressure increased [Recovered/Resolved with Sequelae]
  - Seizure [Recovered/Resolved with Sequelae]
  - Noninfective encephalitis [Recovering/Resolving]
  - Tumour compression [Unknown]
  - Disorientation [Not Recovered/Not Resolved]
  - Metastases to central nervous system [Not Recovered/Not Resolved]
  - Visual impairment [Not Recovered/Not Resolved]
  - Drug resistance [Not Recovered/Not Resolved]
  - Malignant neoplasm progression [Unknown]
  - Metastasis [Unknown]
  - Asthenia [Not Recovered/Not Resolved]
  - Cerebrovascular accident [Unknown]
  - Metastases to adrenals [Not Recovered/Not Resolved]
  - Cough [Not Recovered/Not Resolved]
  - Central nervous system lesion [Unknown]

NARRATIVE: CASE EVENT DATE: 2019
